FAERS Safety Report 9241120 (Version 3)
Quarter: 2013Q2

REPORT INFORMATION
  Report Type: Spontaneous
  Country: DK (occurrence: JP)
  Receive Date: 20130419
  Receipt Date: 20130517
  Transmission Date: 20140414
  Serious: Yes (Life-Threatening, Other)
  Sender: FDA-Public Use
  Company Number: JP-FRI-1000044481

PATIENT
  Age: 80 Year
  Sex: Male
  Weight: 70 kg

DRUGS (8)
  1. LEXAPRO [Suspect]
     Indication: DEPRESSION
     Dosage: 10 MG
     Route: 048
     Dates: start: 20130328, end: 20130330
  2. MEVAN [Concomitant]
     Indication: HYPERLIPIDAEMIA
     Dosage: 10 MG
     Route: 048
     Dates: start: 20090303, end: 20130330
  3. AMLODIPINE OD [Concomitant]
     Indication: HYPERTENSION
     Dosage: 5 MG
     Route: 048
     Dates: start: 20120521, end: 20130330
  4. DEPAS [Concomitant]
     Indication: INSOMNIA
     Dosage: 0.5 MG
     Route: 048
     Dates: start: 20110913, end: 20130330
  5. REBAMIPIDE [Concomitant]
     Indication: GASTRITIS
     Dosage: 300 MG
     Route: 048
     Dates: start: 20101221, end: 20130330
  6. NEUROTROPIN [Concomitant]
     Indication: PAIN
     Dosage: 12 UT
     Route: 048
     Dates: start: 20101221, end: 20130330
  7. RINGEREAZE [Concomitant]
     Indication: PAIN
     Dosage: 60 MG
     Route: 048
     Dates: start: 20110215, end: 20130330
  8. PA [Concomitant]
     Indication: NASOPHARYNGITIS
     Dosage: 2 DF
     Route: 048
     Dates: start: 20130321, end: 20130330

REACTIONS (2)
  - Suicide attempt [Recovered/Resolved]
  - Homicide [Unknown]
